FAERS Safety Report 9895703 (Version 2)
Quarter: 2014Q1

REPORT INFORMATION
  Report Type: Spontaneous
  Country: US (occurrence: US)
  Receive Date: 20140213
  Receipt Date: 20140213
  Transmission Date: 20141002
  Serious: Yes (Other)
  Sender: FDA-Public Use
  Company Number: US-BRISTOL-MYERS SQUIBB COMPANY-18967331

PATIENT
  Age: 58 Year
  Sex: Female
  Weight: 92.97 kg

DRUGS (10)
  1. ABATACEPT SUBQ INJECTION 125MG/ML [Suspect]
     Indication: RHEUMATOID ARTHRITIS
     Dosage: LAST INF:28MAY2013
     Route: 058
     Dates: start: 20120717, end: 20130611
  2. ADVAIR [Concomitant]
  3. CARVEDILOL [Concomitant]
  4. BENAZEPRIL HCL + HCTZ [Concomitant]
  5. FIORICET [Concomitant]
  6. HYDROCODONE + ACETAMINOPHEN [Concomitant]
  7. PRAVACHOL [Concomitant]
  8. PROAIR HFA [Concomitant]
  9. TIZANIDINE [Concomitant]
  10. CLONAZEPAM [Concomitant]

REACTIONS (1)
  - Herpes zoster [Unknown]
